FAERS Safety Report 8825996 (Version 1)
Quarter: 2012Q4

REPORT INFORMATION
  Report Type: Report from Study
  Country: FR (occurrence: FR)
  Receive Date: 20121005
  Receipt Date: 20121005
  Transmission Date: 20130627
  Serious: Yes (Other)
  Sender: FDA-Public Use
  Company Number: FR-ROCHE-1135001

PATIENT
  Age: 45 Year
  Sex: Female

DRUGS (12)
  1. ROACTEMRA [Suspect]
     Indication: RHEUMATOID ARTHRITIS
     Route: 042
     Dates: start: 20100827
  2. ROACTEMRA [Suspect]
     Route: 065
     Dates: start: 20100924
  3. ROACTEMRA [Suspect]
     Route: 065
     Dates: start: 20101020
  4. ROACTEMRA [Suspect]
     Route: 065
     Dates: start: 20101119
  5. ROACTEMRA [Suspect]
     Route: 065
     Dates: start: 20101216
  6. ARAVA [Concomitant]
     Indication: RHEUMATOID ARTHRITIS
     Route: 048
     Dates: start: 20080710
  7. CORTANCYL [Concomitant]
     Indication: RHEUMATOID ARTHRITIS
     Route: 048
  8. APRANAX [Concomitant]
     Route: 065
  9. MOBIC [Concomitant]
     Route: 065
  10. TOPALGIC [Concomitant]
     Dosage: 1 to 4 capsules /day
     Route: 065
  11. DEROXAT [Concomitant]
  12. IXPRIM [Concomitant]

REACTIONS (6)
  - Abdominal pain [Recovered/Resolved]
  - Infection [Recovered/Resolved]
  - Vomiting [Recovered/Resolved]
  - Diarrhoea [Recovered/Resolved]
  - Cholestasis [Recovered/Resolved]
  - Hepatitis [Recovered/Resolved]
